FAERS Safety Report 9986737 (Version 1)
Quarter: 2014Q1

REPORT INFORMATION
  Report Type: Spontaneous
  Country: ES (occurrence: ES)
  Receive Date: 20140307
  Receipt Date: 20140307
  Transmission Date: 20141002
  Serious: Yes (Hospitalization)
  Sender: FDA-Public Use
  Company Number: PHHY2014ES024470

PATIENT
  Age: 5 Year
  Sex: Male

DRUGS (5)
  1. BUDESONIDE [Suspect]
     Indication: ASTHMA
     Dosage: 800 UG, PER DAY
     Route: 055
  2. MONTELUKAST SODIUM [Suspect]
     Indication: ASTHMA
     Dosage: 5 MG, PER DAY
     Route: 048
  3. FLUTICASONE [Suspect]
     Route: 064
  4. SALBUTAMOL [Concomitant]
  5. VASELINE [Concomitant]
     Route: 061

REACTIONS (8)
  - Cough [Recovering/Resolving]
  - Urticaria [Recovering/Resolving]
  - Skin lesion [Recovering/Resolving]
  - Lip swelling [Recovering/Resolving]
  - Lip oedema [Unknown]
  - Malaise [Recovering/Resolving]
  - Therapeutic response decreased [Unknown]
  - Foetal exposure during pregnancy [Unknown]
